FAERS Safety Report 23948120 (Version 2)
Quarter: 2024Q2

REPORT INFORMATION
  Report Type: Spontaneous
  Country: JP (occurrence: JP)
  Receive Date: 20240607
  Receipt Date: 20240624
  Transmission Date: 20240716
  Serious: Yes (Hospitalization)
  Sender: FDA-Public Use
  Company Number: JP-BEH-2024173102

PATIENT
  Age: 23 Year
  Sex: Male
  Weight: 62 kg

DRUGS (8)
  1. IDELVION [Suspect]
     Active Substance: COAGULATION FACTOR IX RECOMBINANT HUMAN
     Indication: Factor IX deficiency
     Dosage: 3500 IU, SINGLE
     Route: 042
     Dates: start: 20240514, end: 20240514
  2. IDELVION [Suspect]
     Active Substance: COAGULATION FACTOR IX RECOMBINANT HUMAN
     Indication: Factor IX deficiency
     Dosage: 3500 IU, SINGLE
     Route: 042
     Dates: start: 20240514, end: 20240514
  3. IDELVION [Suspect]
     Active Substance: COAGULATION FACTOR IX RECOMBINANT HUMAN
     Indication: Haemorrhage
     Dosage: 3500 IU, SINGLE
     Route: 042
     Dates: start: 20240524, end: 20240524
  4. IDELVION [Suspect]
     Active Substance: COAGULATION FACTOR IX RECOMBINANT HUMAN
     Indication: Haemorrhage
     Dosage: 3500 IU, SINGLE
     Route: 042
     Dates: start: 20240524, end: 20240524
  5. IDELVION [Suspect]
     Active Substance: COAGULATION FACTOR IX RECOMBINANT HUMAN
     Dosage: 3500 IU, SINGLE
     Route: 042
     Dates: start: 20240528, end: 20240528
  6. IDELVION [Suspect]
     Active Substance: COAGULATION FACTOR IX RECOMBINANT HUMAN
     Dosage: 3500 IU, SINGLE
     Route: 042
     Dates: start: 20240528, end: 20240528
  7. IDELVION [Suspect]
     Active Substance: COAGULATION FACTOR IX RECOMBINANT HUMAN
     Dosage: 3500 IU, SINGLE
     Route: 042
     Dates: start: 20240530, end: 20240530
  8. IDELVION [Suspect]
     Active Substance: COAGULATION FACTOR IX RECOMBINANT HUMAN
     Dosage: 3500 IU, SINGLE
     Route: 042
     Dates: start: 20240530, end: 20240530

REACTIONS (2)
  - Gastric ulcer haemorrhage [Recovering/Resolving]
  - Haematemesis [Recovering/Resolving]

NARRATIVE: CASE EVENT DATE: 20240528
